FAERS Safety Report 23903588 (Version 1)
Quarter: 2024Q2

REPORT INFORMATION
  Report Type: Spontaneous
  Country: IT (occurrence: IT)
  Receive Date: 20240527
  Receipt Date: 20240527
  Transmission Date: 20240716
  Serious: Yes (Other)
  Sender: FDA-Public Use
  Company Number: None

PATIENT
  Age: 23 Year
  Sex: Female

DRUGS (1)
  1. MAVENCLAD [Suspect]
     Active Substance: CLADRIBINE
     Indication: Multiple sclerosis
     Dosage: LAST DOSE ON 23-AUG-2023.
     Route: 048
     Dates: start: 20220718

REACTIONS (1)
  - Thyroid adenoma [Unknown]

NARRATIVE: CASE EVENT DATE: 20240324
